FAERS Safety Report 24939947 (Version 1)
Quarter: 2025Q1

REPORT INFORMATION
  Report Type: Spontaneous
  Country: GB (occurrence: GB)
  Receive Date: 20250207
  Receipt Date: 20250207
  Transmission Date: 20250409
  Serious: Yes (Other)
  Sender: AMGEN
  Company Number: GB-AMGEN-GBRSP2025022731

PATIENT

DRUGS (2)
  1. XGEVA [Suspect]
     Active Substance: DENOSUMAB
     Indication: Non-small cell lung cancer metastatic
     Route: 065
  2. OSIMERTINIB [Concomitant]
     Active Substance: OSIMERTINIB
     Indication: Non-small cell lung cancer metastatic
     Route: 065
     Dates: start: 202204, end: 202310

REACTIONS (3)
  - Non-small cell lung cancer metastatic [Unknown]
  - Deep vein thrombosis [Unknown]
  - Renal impairment [Unknown]
